FAERS Safety Report 7929614-9 (Version None)
Quarter: 2011Q4

REPORT INFORMATION
  Report Type: 
  Country: None (occurrence: None)
  Receive Date: 20111108
  Receipt Date: 20110303
  Transmission Date: 20120403
  Serious: Yes (Other)
  Sender: FDA-Public Use
  Company Number: PHHY2011US17446

PATIENT
  Age: 54 Year
  Sex: Female
  Weight: 96.6 kg

DRUGS (2)
  1. TAMOXIFEN CITRATE [Concomitant]
  2. ZOMETA [Suspect]
     Indication: METASTASES TO BONE
     Dosage: EVERY 4 WEEK, IV INFUSION
     Route: 042
     Dates: start: 20110223

REACTIONS (4)
  - ARTHRALGIA [None]
  - PYREXIA [None]
  - BONE PAIN [None]
  - INFLUENZA LIKE ILLNESS [None]
